FAERS Safety Report 25525329 (Version 2)
Quarter: 2025Q3

REPORT INFORMATION
  Report Type: Spontaneous
  Country: US (occurrence: US)
  Receive Date: 20250707
  Receipt Date: 20250812
  Transmission Date: 20251020
  Serious: No
  Sender: SANOFI AVENTIS
  Company Number: US-SANOFI-02576926

PATIENT
  Age: 76 Year
  Sex: Male

DRUGS (1)
  1. LANTUS [Suspect]
     Active Substance: INSULIN GLARGINE
     Indication: Type 2 diabetes mellitus
     Dosage: 10 IU, QD
     Route: 065

REACTIONS (6)
  - Palpitations [Unknown]
  - Balance disorder [Unknown]
  - Injection site pain [Recovering/Resolving]
  - Visual impairment [Unknown]
  - Vision blurred [Unknown]
  - Device defective [Unknown]
